FAERS Safety Report 16418644 (Version 1)
Quarter: 2019Q2

REPORT INFORMATION
  Report Type: Spontaneous
  Country: IT (occurrence: IT)
  Receive Date: 20190612
  Receipt Date: 20190612
  Transmission Date: 20190711
  Serious: Yes (Other)
  Sender: FDA-Public Use
  Company Number: IT-ACCORD-132477

PATIENT
  Age: 77 Year
  Sex: Male

DRUGS (4)
  1. FOLINA [FOLIC ACID] [Concomitant]
     Active Substance: FOLIC ACID
  2. LANSOPRAZOLE. [Concomitant]
     Active Substance: LANSOPRAZOLE
  3. METHOTREXATE. [Suspect]
     Active Substance: METHOTREXATE
     Indication: RHEUMATOID ARTHRITIS
     Route: 048
     Dates: start: 20180110, end: 20190315
  4. TIKLID [Concomitant]
     Active Substance: TICLOPIDINE HYDROCHLORIDE

REACTIONS (1)
  - Cellulitis [Recovered/Resolved]

NARRATIVE: CASE EVENT DATE: 20190315
